FAERS Safety Report 23782667 (Version 1)
Quarter: 2024Q2

REPORT INFORMATION
  Report Type: Spontaneous
  Country: FR (occurrence: FR)
  Receive Date: 20240425
  Receipt Date: 20240425
  Transmission Date: 20240716
  Serious: Yes (Other)
  Sender: FDA-Public Use
  Company Number: FR-CELLTRION INC.-2024FR009303

PATIENT

DRUGS (4)
  1. TRUXIMA [Suspect]
     Active Substance: RITUXIMAB-ABBS
     Indication: B-cell lymphoma
     Dosage: 615 MG, EVERY 21 DAYS
     Route: 042
     Dates: start: 20210329, end: 20210329
  2. IMBRUVICA [Suspect]
     Active Substance: IBRUTINIB
     Indication: B-cell lymphoma
     Dosage: 560 MG, QD
     Route: 048
     Dates: start: 20210329, end: 20210421
  3. MODERNA COVID-19 VACCINE [Suspect]
     Active Substance: ELASOMERAN
     Indication: COVID-19 immunisation
     Dosage: 1 DF, 1 TOTAL
     Route: 030
     Dates: start: 20210419, end: 20210419
  4. REVLIMID [Suspect]
     Active Substance: LENALIDOMIDE
     Indication: B-cell lymphoma
     Dosage: 20 MG, QD
     Route: 048
     Dates: start: 20210330, end: 20210418

REACTIONS (2)
  - Hepatocellular injury [Recovering/Resolving]
  - Overdose [Unknown]

NARRATIVE: CASE EVENT DATE: 20210420
